FAERS Safety Report 15267047 (Version 2)
Quarter: 2018Q3

REPORT INFORMATION
  Report Type: Spontaneous
  Country: US (occurrence: US)
  Receive Date: 20180810
  Receipt Date: 20180817
  Transmission Date: 20181010
  Serious: No
  Sender: FDA-Public Use
  Company Number: US-ACTELION-A-NJ2018-177308

PATIENT
  Age: 77 Year
  Sex: Female

DRUGS (4)
  1. AMLODIPINE [Concomitant]
     Active Substance: AMLODIPINE BESYLATE
  2. BENAZEPRIL [Concomitant]
     Active Substance: BENAZEPRIL HYDROCHLORIDE
  3. BIOTIN [Concomitant]
     Active Substance: BIOTIN
  4. VALCHLOR [Suspect]
     Active Substance: MECHLORETHAMINE
     Indication: MYCOSIS FUNGOIDES
     Dosage: UNK
     Route: 061
     Dates: start: 20141019, end: 20180809

REACTIONS (8)
  - Application site vesicles [Unknown]
  - Application site pain [Unknown]
  - Application site wound [Not Recovered/Not Resolved]
  - Application site discolouration [Unknown]
  - Application site pruritus [Unknown]
  - Application site discharge [Unknown]
  - Application site warmth [Unknown]
  - Application site erosion [Unknown]

NARRATIVE: CASE EVENT DATE: 20180810
